FAERS Safety Report 4978528-5 (Version None)
Quarter: 2006Q1

REPORT INFORMATION
  Report Type: 
  Country: None (occurrence: None)
  Receive Date: 20060227
  Receipt Date: 20050527
  Transmission Date: 20060701
  Serious: Yes (Life-Threatening, Hospitalization)
  Sender: FDA-Public Use
  Company Number: WAES 0505USA03285

PATIENT
  Sex: Male

DRUGS (1)
  1. ZOCOR [Suspect]
     Dosage: PO
     Route: 048

REACTIONS (2)
  - DIABETES MELLITUS [None]
  - PANCREATITIS [None]
